FAERS Safety Report 8126595-2 (Version None)
Quarter: 2012Q1

REPORT INFORMATION
  Report Type: 
  Country: None (occurrence: None)
  Receive Date: 20120210
  Receipt Date: 20120201
  Transmission Date: 20120608
  Serious: Yes (Other)
  Sender: FDA-Public Use
  Company Number: US-BIOGENIDEC-2012BI004330

PATIENT
  Age: 48 Year
  Sex: Female

DRUGS (11)
  1. ACIDOPHILUS [Concomitant]
  2. CALCIUM WITH VITAMIN D [Concomitant]
     Route: 048
  3. CALCIUM WITH VITAMIN D [Concomitant]
     Route: 048
  4. CYMBALTA [Concomitant]
     Route: 048
  5. FOSAMAX [Concomitant]
  6. VALTREX [Concomitant]
     Route: 048
  7. WELLBUTRIN [Concomitant]
     Route: 048
  8. MULTI-VITAMIN [Concomitant]
  9. LOVAZA [Concomitant]
  10. TYSABRI [Suspect]
     Indication: MULTIPLE SCLEROSIS
     Route: 042
     Dates: start: 20090811, end: 20111227
  11. BACLOFEN [Concomitant]
     Route: 048

REACTIONS (1)
  - BREAST CANCER [None]
